FAERS Safety Report 4698192-2 (Version None)
Quarter: 2005Q2

REPORT INFORMATION
  Report Type: 
  Country: None (occurrence: None)
  Receive Date: 20050623
  Receipt Date: 20050617
  Transmission Date: 20051028
  Serious: Yes (Other)
  Sender: FDA-Public Use
  Company Number: US-SOLVAY-00205001997

PATIENT
  Age: 78 Year
  Sex: Male
  Weight: 72 kg

DRUGS (12)
  1. PROCARDIA XL [Concomitant]
     Indication: CARDIAC DISORDER
     Dosage: DAILY DOSE: 120 MILLIGRAM(S)
     Route: 048
  2. ANDROGEL [Suspect]
     Indication: BLOOD TESTOSTERONE DECREASED
     Dosage: DAILY DOSE: 2.5 GRAM(S)
     Route: 062
     Dates: start: 20050517
  3. COUMADIN [Concomitant]
     Indication: ANTICOAGULANT THERAPY
     Dosage: DAILY DOSE: 6 MILLIGRAM(S)
     Route: 048
  4. GEMFIBROZIL [Concomitant]
     Indication: ILL-DEFINED DISORDER
     Dosage: DAILY DOSE: 1200 MILLIGRAM(S)
     Route: 048
  5. HYZAAR [Concomitant]
     Indication: HYPERTENSION
     Dosage: DAILY DOSE: 1 DOSAGE FORM
     Route: 048
  6. LANOXIN [Concomitant]
     Indication: CARDIAC DISORDER
     Dosage: DAILY DOSE: .25 MILLIGRAM(S)
     Route: 048
  7. TENORMIN [Concomitant]
     Indication: CARDIAC DISORDER
     Dosage: DAILY DOSE: 50 MILLIGRAM(S)
     Route: 048
  8. TIKOSYN [Concomitant]
     Indication: CARDIAC DISORDER
     Dosage: DAILY DOSE: 500 MILLIGRAM(S)
     Route: 048
  9. STARLIX [Concomitant]
     Indication: DIABETES MELLITUS
     Dosage: DAILY DOSE: 360 MILLIGRAM(S)
     Route: 048
  10. XANAX [Concomitant]
     Indication: SLEEP DISORDER
     Dosage: DAILY DOSE: 1 MILLIGRAM(S)
     Route: 048
  11. FLEXERIL [Concomitant]
     Indication: BACK PAIN
     Dosage: DAILY DOSE: 20 MILLIGRAM(S)
     Route: 048
  12. VICODIN ES [Concomitant]
     Indication: BACK PAIN
     Dosage: DAILY DOSE:  UNKNOWN
     Route: 048

REACTIONS (3)
  - DIARRHOEA [None]
  - DRUG INEFFECTIVE [None]
  - HAEMOPTYSIS [None]
